FAERS Safety Report 5401281-8 (Version None)
Quarter: 2007Q3

REPORT INFORMATION
  Report Type: 
  Country: None (occurrence: None)
  Receive Date: 20070731
  Receipt Date: 20070725
  Transmission Date: 20080115
  Serious: Yes (Hospitalization, Other)
  Sender: FDA-Public Use
  Company Number: JP-JNJFOC-20070703257

PATIENT
  Sex: Female
  Weight: 43 kg

DRUGS (24)
  1. REMICADE [Suspect]
     Route: 042
  2. REMICADE [Suspect]
     Route: 042
  3. REMICADE [Suspect]
     Route: 042
  4. REMICADE [Suspect]
     Route: 042
  5. REMICADE [Suspect]
     Route: 042
  6. REMICADE [Suspect]
     Route: 042
  7. REMICADE [Suspect]
     Route: 042
  8. REMICADE [Suspect]
     Route: 042
  9. REMICADE [Suspect]
     Route: 042
  10. REMICADE [Suspect]
     Indication: RHEUMATOID ARTHRITIS
     Route: 042
  11. METHOTREXATE SODIUM [Concomitant]
     Indication: RHEUMATOID ARTHRITIS
     Route: 048
  12. RIMATIL [Concomitant]
     Indication: RHEUMATOID ARTHRITIS
     Route: 048
  13. PREDNISOLONE [Concomitant]
     Indication: RHEUMATOID ARTHRITIS
     Route: 048
  14. MOBIC [Concomitant]
     Indication: RHEUMATOID ARTHRITIS
     Route: 048
  15. HYPEN [Concomitant]
     Indication: RHEUMATOID ARTHRITIS
     Route: 048
  16. FOLIAMIN [Concomitant]
     Indication: FOLATE DEFICIENCY
     Route: 048
  17. MOBILAT [Concomitant]
     Indication: RHEUMATOID ARTHRITIS
  18. MS ONSHIPPU [Concomitant]
     Indication: RHEUMATOID ARTHRITIS
  19. KETOPROFEN [Concomitant]
     Indication: RHEUMATOID ARTHRITIS
  20. LUDIOMIL [Concomitant]
     Indication: INSOMNIA
     Route: 048
  21. SEDIEL [Concomitant]
     Indication: INSOMNIA
     Route: 048
  22. ONEALFA [Concomitant]
     Indication: OSTEOPOROSIS
     Route: 048
  23. CYTOTEC [Concomitant]
     Indication: PROPHYLAXIS
     Route: 048
  24. PURSENNID [Concomitant]
     Indication: CONSTIPATION
     Route: 048

REACTIONS (1)
  - URETERIC CANCER [None]
